FAERS Safety Report 14143566 (Version 4)
Quarter: 2018Q2

REPORT INFORMATION
  Report Type: Report from Study
  Country: BR (occurrence: BR)
  Receive Date: 20171030
  Receipt Date: 20180611
  Transmission Date: 20180711
  Serious: Yes (Death, Hospitalization, Other)
  Sender: FDA-Public Use
  Company Number: PHHY2017BR149579

PATIENT
  Sex: Female
  Weight: 42 kg

DRUGS (2)
  1. VOTRIENT [Suspect]
     Active Substance: PAZOPANIB HYDROCHLORIDE
     Indication: METASTATIC RENAL CELL CARCINOMA
     Dosage: 2 DF, QD
     Route: 048
     Dates: start: 20170629
  2. VOTRIENT [Suspect]
     Active Substance: PAZOPANIB HYDROCHLORIDE
     Dosage: 400 MG, QD
     Route: 048
     Dates: start: 201707

REACTIONS (19)
  - Weight decreased [Unknown]
  - Dysentery [Recovered/Resolved]
  - Malaise [Recovering/Resolving]
  - Joint swelling [Unknown]
  - Gait inability [Unknown]
  - Dysgeusia [Recovering/Resolving]
  - Death [Fatal]
  - Peripheral swelling [Unknown]
  - Cachexia [Unknown]
  - Memory impairment [Unknown]
  - Asthenia [Unknown]
  - Neoplasm malignant [Unknown]
  - Photosensitivity reaction [Unknown]
  - Pain [Recovering/Resolving]
  - Pain in extremity [Unknown]
  - Seizure [Unknown]
  - Malaise [Unknown]
  - Arrhythmia [Unknown]
  - Vomiting [Unknown]
